FAERS Safety Report 7794933-6 (Version None)
Quarter: 2011Q4

REPORT INFORMATION
  Report Type: 
  Country: None (occurrence: None)
  Receive Date: 20111004
  Receipt Date: 20110923
  Transmission Date: 20120403
  Serious: Yes (Hospitalization)
  Sender: FDA-Public Use
  Company Number: FR-PFIZER INC-033-9211-M0100014

PATIENT
  Age: 58 Year
  Sex: Female
  Weight: 60 kg

DRUGS (9)
  1. MOTILIUM [Concomitant]
     Route: 065
     Dates: start: 20011012
  2. FLUCONAZOLE [Suspect]
     Indication: ILL-DEFINED DISORDER
     Dosage: BID
     Route: 048
     Dates: start: 20011012
  3. OMEPRAZOLE [Suspect]
     Indication: ILL-DEFINED DISORDER
     Dosage: DAILY
     Route: 048
     Dates: start: 20011012
  4. DECAN [Concomitant]
     Route: 065
  5. MEDROL [Suspect]
     Indication: ILL-DEFINED DISORDER
     Dosage: DAILY
     Route: 048
     Dates: start: 20011012
  6. LASIX [Suspect]
     Indication: ILL-DEFINED DISORDER
     Dosage: ONE DOSE,DAILY
     Route: 048
     Dates: start: 20011012
  7. DEBRIDAT [Suspect]
     Dosage: TID
     Route: 048
     Dates: start: 20011012
  8. CERNEVIT-12 [Concomitant]
     Route: 065
  9. TAXOL [Suspect]
     Indication: ILL-DEFINED DISORDER
     Dosage: DAILY
     Route: 048
     Dates: start: 20011031, end: 20011031

REACTIONS (2)
  - SKIN EXFOLIATION [None]
  - ECZEMA [None]
